FAERS Safety Report 5673662-9 (Version None)
Quarter: 2008Q2

REPORT INFORMATION
  Report Type: 
  Country: None (occurrence: None)
  Receive Date: 20080225
  Receipt Date: 20070503
  Transmission Date: 20081010
  Serious: Yes (Other)
  Sender: FDA-Public Use
  Company Number: WAES 0705USA02370

PATIENT
  Age: 64 Year
  Sex: Male

DRUGS (18)
  1. ZOCOR [Suspect]
     Indication: HYPERCHLORAEMIA
     Dosage: 30 MG/DAILY/PO ; 30 MG/AM/PO ; 20 MG/DAILY/PO ; 40 MG/DAILY/PO
     Route: 048
     Dates: start: 20060101, end: 20060101
  2. ZOCOR [Suspect]
     Indication: HYPERLIPIDAEMIA
     Dosage: 30 MG/DAILY/PO ; 30 MG/AM/PO ; 20 MG/DAILY/PO ; 40 MG/DAILY/PO
     Route: 048
     Dates: start: 20060101, end: 20060101
  3. ZOCOR [Suspect]
     Indication: HYPERCHLORAEMIA
     Dosage: 30 MG/DAILY/PO ; 30 MG/AM/PO ; 20 MG/DAILY/PO ; 40 MG/DAILY/PO
     Route: 048
     Dates: end: 20060101
  4. ZOCOR [Suspect]
     Indication: HYPERLIPIDAEMIA
     Dosage: 30 MG/DAILY/PO ; 30 MG/AM/PO ; 20 MG/DAILY/PO ; 40 MG/DAILY/PO
     Route: 048
     Dates: end: 20060101
  5. ZOCOR [Suspect]
     Indication: HYPERCHLORAEMIA
     Dosage: 30 MG/DAILY/PO ; 30 MG/AM/PO ; 20 MG/DAILY/PO ; 40 MG/DAILY/PO
     Route: 048
     Dates: end: 20060101
  6. ZOCOR [Suspect]
     Indication: HYPERLIPIDAEMIA
     Dosage: 30 MG/DAILY/PO ; 30 MG/AM/PO ; 20 MG/DAILY/PO ; 40 MG/DAILY/PO
     Route: 048
     Dates: end: 20060101
  7. ZOCOR [Suspect]
     Indication: HYPERCHLORAEMIA
     Dosage: 30 MG/DAILY/PO ; 30 MG/AM/PO ; 20 MG/DAILY/PO ; 40 MG/DAILY/PO
     Route: 048
     Dates: start: 20061001, end: 20061101
  8. ZOCOR [Suspect]
     Indication: HYPERLIPIDAEMIA
     Dosage: 30 MG/DAILY/PO ; 30 MG/AM/PO ; 20 MG/DAILY/PO ; 40 MG/DAILY/PO
     Route: 048
     Dates: start: 20061001, end: 20061101
  9. AVAPRO [Concomitant]
  10. CELEBREX [Concomitant]
  11. LUNESTA [Concomitant]
  12. NORVASC [Concomitant]
  13. PLAVIX [Concomitant]
  14. VALIUM [Concomitant]
  15. ASPIRIN [Concomitant]
  16. ATENOLOL [Concomitant]
  17. OMEPRAZOLE [Concomitant]
  18. MULTI-VITAMINS [Concomitant]

REACTIONS (4)
  - ARTHRALGIA [None]
  - INSOMNIA [None]
  - MEDICATION ERROR [None]
  - RHABDOMYOLYSIS [None]
